FAERS Safety Report 8291995-7 (Version None)
Quarter: 2012Q2

REPORT INFORMATION
  Report Type: 
  Country: None (occurrence: None)
  Receive Date: 20120417
  Receipt Date: 20120405
  Transmission Date: 20120825
  Serious: Yes (Other)
  Sender: FDA-Public Use
  Company Number: US-JNJFOC-20120403358

PATIENT
  Age: 50 Year
  Sex: Female
  Weight: 74.84 kg

DRUGS (9)
  1. ACYCLOVIR [Concomitant]
     Route: 048
     Dates: start: 19780101
  2. OMEPRAZOLE [Concomitant]
     Route: 048
  3. ASPIRIN [Concomitant]
     Indication: CEREBROVASCULAR ACCIDENT PROPHYLAXIS
     Route: 048
  4. TOPAMAX [Suspect]
     Route: 048
     Dates: start: 20040101, end: 20040101
  5. VENLAFAXINE [Concomitant]
     Indication: ANTIDEPRESSANT THERAPY
     Route: 048
  6. A MULTIVITAMIN [Concomitant]
     Indication: ROUTINE HEALTH MAINTENANCE
     Route: 065
  7. ROSUVASTATIN [Concomitant]
     Route: 048
  8. TOPAMAX [Suspect]
     Indication: MIGRAINE PROPHYLAXIS
     Route: 048
     Dates: start: 20040101
  9. VENLAFAXINE [Concomitant]
     Route: 048

REACTIONS (7)
  - CHRONIC OBSTRUCTIVE PULMONARY DISEASE [None]
  - VITAMIN D DEFICIENCY [None]
  - DRUG PRESCRIBING ERROR [None]
  - ADVERSE EVENT [None]
  - WRONG TECHNIQUE IN DRUG USAGE PROCESS [None]
  - MIGRAINE [None]
  - NIGHTMARE [None]
